FAERS Safety Report 8263506-3 (Version None)
Quarter: 2012Q2

REPORT INFORMATION
  Report Type: 
  Country: None (occurrence: None)
  Receive Date: 20120405
  Receipt Date: 20120402
  Transmission Date: 20120825
  Serious: Yes (Other)
  Sender: FDA-Public Use
  Company Number: US-PFIZER INC-2012083704

PATIENT
  Sex: Male
  Weight: 74.83 kg

DRUGS (6)
  1. LIPITOR [Suspect]
     Indication: BLOOD CHOLESTEROL INCREASED
     Dosage: UNK, 1X/DAY
     Route: 048
  2. LIPITOR [Suspect]
     Dosage: 40 MG, 1X/DAY
     Route: 048
  3. FLOMAX ^CSL^ [Concomitant]
     Dosage: UNK
  4. PROSCAR [Concomitant]
     Dosage: UNK
  5. METOPROLOL [Concomitant]
     Dosage: UNK
  6. SINEMET [Concomitant]
     Indication: PARKINSONISM
     Dosage: UNK

REACTIONS (1)
  - GASTROINTESTINAL STROMAL TUMOUR [None]
